FAERS Safety Report 5496450-5 (Version None)
Quarter: 2007Q4

REPORT INFORMATION
  Report Type: 
  Country: None (occurrence: None)
  Receive Date: 20071025
  Receipt Date: 20071018
  Transmission Date: 20080405
  Serious: Yes (Hospitalization)
  Sender: FDA-Public Use
  Company Number: BR-JNJFOC-20071005518

PATIENT
  Age: 5 Year
  Sex: Female
  Weight: 23 kg

DRUGS (3)
  1. TYLENOL (CAPLET) [Suspect]
     Route: 048
  2. TYLENOL (CAPLET) [Suspect]
     Indication: ANALGESIA
     Route: 048
  3. NISULID [Suspect]
     Indication: DRUG USE FOR UNKNOWN INDICATION
     Dosage: 20 DROPS
     Route: 048

REACTIONS (1)
  - CONVULSION [None]
